FAERS Safety Report 7560642-1 (Version None)
Quarter: 2011Q2

REPORT INFORMATION
  Report Type: 
  Country: None (occurrence: None)
  Receive Date: 20110617
  Receipt Date: 20110617
  Transmission Date: 20111010
  Serious: Yes (Other)
  Sender: FDA-Public Use
  Company Number: None

PATIENT
  Sex: Male

DRUGS (1)
  1. PAROXETINE HCL [Suspect]

REACTIONS (3)
  - PANIC ATTACK [None]
  - PRODUCT SUBSTITUTION ISSUE [None]
  - OBSESSIVE THOUGHTS [None]
